FAERS Safety Report 7700323-4 (Version None)
Quarter: 2011Q3

REPORT INFORMATION
  Report Type: 
  Country: None (occurrence: None)
  Receive Date: 20110816
  Receipt Date: 20110805
  Transmission Date: 20111222
  Serious: Yes (Hospitalization)
  Sender: FDA-Public Use
  Company Number: GER/USA/11/0020669

PATIENT
  Age: 12 Year
  Sex: Female

DRUGS (1)
  1. LAMOTRIGINE [Suspect]
     Indication: PRODUCT USED FOR UNKNOWN INDICATION

REACTIONS (5)
  - ANTINUCLEAR ANTIBODY POSITIVE [None]
  - BILIARY TRACT DISORDER [None]
  - HEPATITIS ACUTE [None]
  - HEPATIC FIBROSIS [None]
  - HEPATOCELLULAR INJURY [None]
